FAERS Safety Report 9209008 (Version 1)
Quarter: 2013Q2

REPORT INFORMATION
  Report Type: Spontaneous
  Country: GB (occurrence: GB)
  Receive Date: 20130404
  Receipt Date: 20130404
  Transmission Date: 20140414
  Serious: Yes (Hospitalization)
  Sender: FDA-Public Use
  Company Number: GB-ACCORD-017037

PATIENT
  Sex: Female

DRUGS (5)
  1. RAMIPRIL [Suspect]
     Indication: HYPERTENSION
  2. SIMVASTATIN [Interacting]
     Indication: HYPERCHOLESTEROLAEMIA
  3. AMLODIPINE [Interacting]
     Indication: HYPERTENSION
  4. ATORVASTATIN [Suspect]
     Indication: HYPERTENSION
  5. BENDROFLUMETHIAZIDE [Concomitant]
     Indication: DIURETIC THERAPY
     Dosage: ONGOING.

REACTIONS (13)
  - Cellulitis [Not Recovered/Not Resolved]
  - Swollen tongue [Not Recovered/Not Resolved]
  - Dizziness [Not Recovered/Not Resolved]
  - Back pain [Not Recovered/Not Resolved]
  - Emotional distress [Not Recovered/Not Resolved]
  - Muscle twitching [Not Recovered/Not Resolved]
  - Blood pressure increased [Not Recovered/Not Resolved]
  - Hypersomnia [Not Recovered/Not Resolved]
  - Heart rate increased [Not Recovered/Not Resolved]
  - Hypoaesthesia [Not Recovered/Not Resolved]
  - Hypersensitivity [Not Recovered/Not Resolved]
  - Drug interaction [Unknown]
  - Vomiting [Not Recovered/Not Resolved]
